FAERS Safety Report 9331494 (Version 1)
Quarter: 2013Q2

REPORT INFORMATION
  Report Type: Spontaneous
  Country: DE (occurrence: None)
  Receive Date: 20130531
  Receipt Date: 20130531
  Transmission Date: 20140414
  Serious: Yes (Other)
  Sender: FDA-Public Use
  Company Number: 1305-701

PATIENT
  Sex: Female

DRUGS (1)
  1. EYLEA(AFLIBERCEPT)(INJECTION)(AFLIBERCEPT) [Suspect]
     Indication: AGE-RELATED MACULAR DEGENERATION

REACTIONS (3)
  - Eye pain [None]
  - Feeling hot [None]
  - Foreign body sensation in eyes [None]
